FAERS Safety Report 11905841 (Version 1)
Quarter: 2016Q1

REPORT INFORMATION
  Report Type: Report from Study
  Country: CN (occurrence: CN)
  Receive Date: 20160111
  Receipt Date: 20160111
  Transmission Date: 20160526
  Serious: Yes (Hospitalization)
  Sender: FDA-Public Use
  Company Number: CN-ROCHE-1669489

PATIENT
  Sex: Female
  Weight: 51 kg

DRUGS (2)
  1. AVASTIN [Suspect]
     Active Substance: BEVACIZUMAB
     Indication: METASTASES TO LIVER
  2. AVASTIN [Suspect]
     Active Substance: BEVACIZUMAB
     Indication: RECTAL CANCER
     Route: 041
     Dates: start: 20150401

REACTIONS (9)
  - Asthenia [Unknown]
  - Dysuria [Unknown]
  - Movement disorder [Unknown]
  - Dyschezia [Unknown]
  - Stoma site haemorrhage [Unknown]
  - Asthenia [Recovering/Resolving]
  - Intestinal obstruction [Unknown]
  - Flatulence [Unknown]
  - Blood potassium decreased [Unknown]
